FAERS Safety Report 8582358-5 (Version None)
Quarter: 2012Q3

REPORT INFORMATION
  Report Type: 
  Country: None (occurrence: None)
  Receive Date: 20120809
  Receipt Date: 20120606
  Transmission Date: 20120928
  Serious: Yes (Death)
  Sender: FDA-Public Use
  Company Number: FR-ROCHE-1096258

PATIENT
  Sex: Female

DRUGS (11)
  1. LEUCOVORIN CALCIUM [Concomitant]
     Dates: start: 20101027, end: 20110127
  2. XELODA [Suspect]
     Indication: COLON CANCER
     Dates: start: 20110415, end: 20110819
  3. FLUOROURACIL [Concomitant]
     Dates: start: 20101027, end: 20110127
  4. VECTIBIX [Concomitant]
     Dates: start: 20110225, end: 20110603
  5. LEUCOVORIN CALCIUM [Concomitant]
     Dates: start: 20100819, end: 20101020
  6. FLUOROURACIL [Concomitant]
     Dates: start: 20100819, end: 20101020
  7. IRINOTECAN HCL [Concomitant]
     Dates: start: 20101027, end: 20110127
  8. AVASTIN [Suspect]
     Indication: COLON CANCER
  9. OXALIPLATIN [Concomitant]
     Dates: start: 20101027, end: 20110127
  10. AVASTIN [Suspect]
     Dates: start: 20101027, end: 20110127
  11. OXALIPLATIN [Concomitant]
     Dates: start: 20100819, end: 20101020

REACTIONS (7)
  - DEATH [None]
  - ASTHENIA [None]
  - MUCOSAL INFLAMMATION [None]
  - TOXICITY TO VARIOUS AGENTS [None]
  - NAUSEA [None]
  - DECREASED APPETITE [None]
  - ANAEMIA [None]
